FAERS Safety Report 5913457-1 (Version None)
Quarter: 2008Q4

REPORT INFORMATION
  Report Type: 
  Country: None (occurrence: None)
  Receive Date: 20081008
  Receipt Date: 20081008
  Transmission Date: 20090506
  Serious: Yes (Hospitalization)
  Sender: FDA-Public Use
  Company Number: None

PATIENT
  Sex: Female
  Weight: 60 kg

DRUGS (1)
  1. TEMOZOLOMIDE [Suspect]
     Dosage: 1150 MG

REACTIONS (8)
  - ASTHENIA [None]
  - BEDRIDDEN [None]
  - COGNITIVE DISORDER [None]
  - CONFUSIONAL STATE [None]
  - MEMORY IMPAIRMENT [None]
  - PLATELET COUNT DECREASED [None]
  - PYREXIA [None]
  - WHITE BLOOD CELL COUNT DECREASED [None]
